FAERS Safety Report 9105640 (Version 2)
Quarter: 2013Q1

REPORT INFORMATION
  Report Type: Spontaneous
  Country: US (occurrence: US)
  Receive Date: 20130221
  Receipt Date: 20130221
  Transmission Date: 20140127
  Serious: No
  Sender: FDA-Public Use
  Company Number: US-TEVA-331682USA

PATIENT
  Sex: 0

DRUGS (1)
  1. TREANDA [Suspect]
     Route: 042

REACTIONS (2)
  - Phlebitis [Not Recovered/Not Resolved]
  - Drug dispensing error [Unknown]
